FAERS Safety Report 5585962-1 (Version None)
Quarter: 2008Q1

REPORT INFORMATION
  Report Type: 
  Country: None (occurrence: None)
  Receive Date: 20080109
  Receipt Date: 20071231
  Transmission Date: 20080703
  Serious: Yes (Hospitalization)
  Sender: FDA-Public Use
  Company Number: US-BAXTER-2007BH009674

PATIENT
  Age: 67 Year
  Sex: Female
  Weight: 54 kg

DRUGS (9)
  1. HEPARIN SODIUM 1,000 UNITS AND SODIUM CHLORIDE 0.9% [Suspect]
     Indication: ANTICOAGULANT THERAPY
     Route: 042
     Dates: start: 20071115, end: 20071116
  2. CANGRELOR VS PLACEBO INJECTION (CODE NOT BROKEN) [Suspect]
     Indication: PERCUTANEOUS CORONARY INTERVENTION
     Route: 040
     Dates: start: 20071116, end: 20071116
  3. CANGRELOR VS PLACEBO INJECTION (CODE NOT BROKEN) [Suspect]
     Route: 042
     Dates: start: 20071116, end: 20071116
  4. CLOPIDOGREL [Suspect]
     Indication: ANTICOAGULANT THERAPY
     Route: 048
     Dates: start: 20071116, end: 20071116
  5. CLOPIDOGREL [Suspect]
     Route: 048
     Dates: start: 20071116, end: 20071116
  6. EPTIFIBATIDE [Suspect]
     Indication: ANTICOAGULANT THERAPY
     Route: 042
     Dates: start: 20071116, end: 20071117
  7. EPTIFIBATIDE [Suspect]
     Route: 040
     Dates: start: 20071116, end: 20071116
  8. CLOPIDOGREL [Suspect]
     Indication: ANTICOAGULANT THERAPY
     Route: 048
     Dates: start: 20071111, end: 20071116
  9. ASPIRIN [Suspect]
     Indication: ANTICOAGULANT THERAPY
     Route: 048
     Dates: start: 20071115, end: 20071116

REACTIONS (3)
  - HAEMATOCRIT DECREASED [None]
  - HAEMATOMA [None]
  - HAEMOGLOBIN DECREASED [None]
